FAERS Safety Report 14829651 (Version 2)
Quarter: 2018Q2

REPORT INFORMATION
  Report Type: Report from Study
  Country: BR (occurrence: BR)
  Receive Date: 20180430
  Receipt Date: 20180508
  Transmission Date: 20180711
  Serious: Yes (Disabling, Other)
  Sender: FDA-Public Use
  Company Number: PHHY2018BR071594

PATIENT
  Age: 50 Year
  Sex: Female
  Weight: 75 kg

DRUGS (1)
  1. DIOVAN HCT [Suspect]
     Active Substance: HYDROCHLOROTHIAZIDE\VALSARTAN
     Indication: HYPERTENSION
     Dosage: 1 DF (HYDROCHOLOTHIAZIDE 25 MG, VALSARTAN 160 MG), QD (15 YEARS AGO)
     Route: 048

REACTIONS (4)
  - Triple negative breast cancer [Unknown]
  - Asthenia [Unknown]
  - Impaired healing [Recovered/Resolved with Sequelae]
  - Device failure [Recovered/Resolved with Sequelae]

NARRATIVE: CASE EVENT DATE: 20120130
